FAERS Safety Report 7457476-5 (Version None)
Quarter: 2011Q2

REPORT INFORMATION
  Report Type: 
  Country: None (occurrence: None)
  Receive Date: 20110504
  Receipt Date: 20110427
  Transmission Date: 20111010
  Serious: Yes (Death, Hospitalization)
  Sender: FDA-Public Use
  Company Number: SK-ELI_LILLY_AND_COMPANY-SK201104001773

PATIENT
  Sex: Male

DRUGS (5)
  1. DEXAMETHASONE [Concomitant]
     Indication: PREMEDICATION
  2. CYANOCOBALAMIN [Concomitant]
     Indication: SUPPLEMENTATION THERAPY
  3. CISPLATIN [Concomitant]
     Indication: LUNG ADENOCARCINOMA
     Dosage: UNK
     Dates: start: 20110322
  4. FOLIC ACID [Concomitant]
     Indication: SUPPLEMENTATION THERAPY
  5. ALIMTA [Suspect]
     Indication: LUNG ADENOCARCINOMA
     Dosage: 1000 MG, EVERY 21 DAYS
     Route: 042
     Dates: start: 20110322

REACTIONS (4)
  - DEATH [None]
  - NEUTROPENIA [None]
  - LEUKOPENIA [None]
  - THROMBOCYTOPENIA [None]
